FAERS Safety Report 6018193-1 (Version None)
Quarter: 2008Q4

REPORT INFORMATION
  Report Type: 
  Country: None (occurrence: None)
  Receive Date: 20081223
  Receipt Date: 20081215
  Transmission Date: 20090506
  Serious: Yes (Hospitalization)
  Sender: FDA-Public Use
  Company Number: PHHY2008IE30398

PATIENT
  Sex: Female

DRUGS (11)
  1. CLOZARIL [Suspect]
     Indication: SCHIZOPHRENIA
     Dosage: 100MG MANE AND 150MG NOCTE
     Dates: start: 20040514
  2. ATENOLOL [Concomitant]
     Indication: HYPERTENSION
  3. CEFUROXIME [Concomitant]
  4. ENOXAPARIN SODIUM [Concomitant]
  5. FLAGYL [Concomitant]
  6. ZOFRAN [Concomitant]
  7. PROCHLORPERAZINE [Concomitant]
  8. ALLOPURINOL [Concomitant]
  9. MORPHINE [Concomitant]
  10. DIFENE [Concomitant]
  11. SOLIAN [Suspect]
     Dosage: 200 MG NOCTE

REACTIONS (1)
  - CHOLECYSTITIS [None]
